FAERS Safety Report 4887589-3 (Version None)
Quarter: 2006Q1

REPORT INFORMATION
  Report Type: 
  Country: None (occurrence: None)
  Receive Date: 20060119
  Receipt Date: 20060119
  Transmission Date: 20060701
  Serious: Yes (Hospitalization)
  Sender: FDA-Public Use
  Company Number: None

PATIENT
  Age: 82 Year
  Sex: Male
  Weight: 95.709 kg

DRUGS (2)
  1. LISINOPRIL [Suspect]
     Indication: CORONARY ARTERY DISEASE
     Dosage: 2.5 MG PO DAILY
     Route: 048
     Dates: start: 20050921, end: 20050922
  2. LISINOPRIL [Suspect]
     Indication: HYPERTENSION
     Dosage: 2.5 MG PO DAILY
     Route: 048
     Dates: start: 20050921, end: 20050922

REACTIONS (1)
  - RENAL FAILURE ACUTE [None]
